FAERS Safety Report 6470156-8 (Version None)
Quarter: 2009Q4

REPORT INFORMATION
  Report Type: 
  Country: None (occurrence: None)
  Receive Date: 20091118
  Receipt Date: 20090821
  Transmission Date: 20100525
  Serious: Yes (Other)
  Sender: FDA-Public Use
  Company Number: 2009BI026845

PATIENT
  Age: 44 Year
  Sex: Female

DRUGS (3)
  1. TYSABRI [Suspect]
     Indication: MULTIPLE SCLEROSIS
     Dosage: 300 MG; QM; IV
     Route: 042
     Dates: start: 20090611
  2. AVONEX [Concomitant]
  3. COPAXONE [Concomitant]

REACTIONS (2)
  - DEEP VEIN THROMBOSIS [None]
  - VULVOVAGINAL MYCOTIC INFECTION [None]
